FAERS Safety Report 5285704-3 (Version None)
Quarter: 2007Q1

REPORT INFORMATION
  Report Type: 
  Country: None (occurrence: None)
  Receive Date: 20070126
  Receipt Date: 20060922
  Transmission Date: 20070707
  Serious: Yes (Hospitalization)
  Sender: FDA-Public Use
  Company Number: 2006CT000849

PATIENT
  Age: 64 Year
  Sex: Male
  Weight: 55 kg

DRUGS (13)
  1. VENTAVIS [Suspect]
     Indication: PULMONARY HYPERTENSION
     Dosage: 5 UG;6TO9X/DAY;INH
     Route: 055
     Dates: start: 20060713, end: 20060922
  2. PROSCAR [Concomitant]
  3. RESTASIS [Concomitant]
  4. METOCLOPRAMIDE [Concomitant]
  5. PREDNISONE [Concomitant]
  6. SILDENAFIL CITRATE [Concomitant]
  7. LACTULOSE [Concomitant]
  8. TIOTROPIUM BROMIDE [Concomitant]
  9. FERROUS SULFATE [Concomitant]
  10. PERCOCET [Concomitant]
  11. DONNATAL [Concomitant]
  12. CYCLOPHOSPHAMIDE [Concomitant]
  13. PREVACID [Concomitant]

REACTIONS (1)
  - CARDIAC FAILURE CONGESTIVE [None]
